FAERS Safety Report 5696469-5 (Version None)
Quarter: 2008Q2

REPORT INFORMATION
  Report Type: 
  Country: None (occurrence: None)
  Receive Date: 20080408
  Receipt Date: 20071126
  Transmission Date: 20081010
  Serious: No
  Sender: FDA-Public Use
  Company Number: US-BOEHRINGER INGELHEIM GMBH, GERMANY-2006-BP-14975BP

PATIENT
  Sex: Female
  Weight: 77 kg

DRUGS (23)
  1. MIRAPEX [Suspect]
     Indication: RESTLESS LEGS SYNDROME
     Route: 048
     Dates: start: 20041021, end: 20060101
  2. SPIRIVA [Concomitant]
     Indication: CHRONIC OBSTRUCTIVE PULMONARY DISEASE
     Route: 055
     Dates: start: 20040527
  3. ZOCOR [Concomitant]
     Indication: BLOOD CHOLESTEROL INCREASED
     Dates: start: 20021001
  4. OMEPRAZOLE [Concomitant]
     Indication: GASTROOESOPHAGEAL REFLUX DISEASE
     Dates: start: 20040320
  5. ESTRATEST [Concomitant]
     Indication: HORMONE REPLACEMENT THERAPY
     Dates: start: 20040329
  6. LEVOTHYROXINE SODIUM [Concomitant]
     Indication: HYPOTHYROIDISM
  7. VERAPAMIL HCL [Concomitant]
     Indication: HYPERTENSION
     Dates: start: 20040329
  8. COMBIVENT [Concomitant]
     Dates: start: 20040329
  9. ADVAIR HFA [Concomitant]
     Indication: CHRONIC OBSTRUCTIVE PULMONARY DISEASE
     Dates: start: 20040329
  10. LYRICA [Concomitant]
     Indication: COMPLEX REGIONAL PAIN SYNDROME
     Dates: start: 20061030
  11. TOPAMAX [Concomitant]
     Dates: start: 20050101
  12. KLONOPIN [Concomitant]
     Indication: MUSCLE SPASMS
     Dates: start: 20040527
  13. CYMBALTA [Concomitant]
     Dates: start: 20060201
  14. ALEVE [Concomitant]
     Indication: ARTHRALGIA
     Route: 048
     Dates: start: 20050505
  15. ALEVE [Concomitant]
     Indication: PAIN IN EXTREMITY
  16. PREDNISONE [Concomitant]
     Dates: start: 20050216
  17. PAXIL CR [Concomitant]
  18. AMBIEN [Concomitant]
     Dates: start: 20050201
  19. INDERAL LA [Concomitant]
     Dates: start: 20050301
  20. SEROQUEL [Concomitant]
  21. LUNESTA [Concomitant]
  22. NEURONTIN [Concomitant]
     Indication: COMPLEX REGIONAL PAIN SYNDROME
  23. NEURONTIN [Concomitant]
     Indication: HERPES ZOSTER

REACTIONS (12)
  - ANHEDONIA [None]
  - ANXIETY [None]
  - DEPRESSION [None]
  - ECONOMIC PROBLEM [None]
  - EMOTIONAL DISTRESS [None]
  - FEAR [None]
  - FLIGHT OF IDEAS [None]
  - INJURY [None]
  - INSOMNIA [None]
  - OBSESSIVE-COMPULSIVE DISORDER [None]
  - PAIN [None]
  - PATHOLOGICAL GAMBLING [None]
